FAERS Safety Report 7583568-6 (Version None)
Quarter: 2011Q2

REPORT INFORMATION
  Report Type: 
  Country: None (occurrence: None)
  Receive Date: 20110630
  Receipt Date: 20110609
  Transmission Date: 20111010
  Serious: Yes (Death)
  Sender: FDA-Public Use
  Company Number: A0751420A

PATIENT
  Sex: Male

DRUGS (1)
  1. AVANDIA [Suspect]
     Indication: DIABETES MELLITUS
     Route: 048
     Dates: start: 20021108

REACTIONS (10)
  - SCAPULA FRACTURE [None]
  - DEATH [None]
  - MYOCARDIAL INFARCTION [None]
  - ROAD TRAFFIC ACCIDENT [None]
  - TRAUMATIC LUNG INJURY [None]
  - TRAUMATIC RENAL INJURY [None]
  - COLONIC HAEMATOMA [None]
  - RIB FRACTURE [None]
  - CARDIAC FAILURE CONGESTIVE [None]
  - RETROPERITONEAL HAEMATOMA [None]
